FAERS Safety Report 7125610-2 (Version None)
Quarter: 2010Q4

REPORT INFORMATION
  Report Type: 
  Country: None (occurrence: None)
  Receive Date: 20101112
  Receipt Date: 20101111
  Transmission Date: 20110411
  Serious: Yes (Other)
  Sender: FDA-Public Use
  Company Number: 1022556-2010-00078

PATIENT
  Age: 81 Year
  Sex: Female
  Weight: 62.1428 kg

DRUGS (1)
  1. ICY HOT NO MESS APPLICATOR 2.5 OZ [Suspect]
     Indication: MYALGIA
     Dosage: TOPICAL
     Route: 061

REACTIONS (2)
  - CELLULITIS [None]
  - CHEMICAL INJURY [None]
